FAERS Safety Report 7385695-5 (Version None)
Quarter: 2011Q1

REPORT INFORMATION
  Report Type: 
  Country: None (occurrence: None)
  Receive Date: 20110331
  Receipt Date: 20110318
  Transmission Date: 20110831
  Serious: Yes (Hospitalization)
  Sender: FDA-Public Use
  Company Number: DE-CELGENEUS-062-C5013-11011469

PATIENT
  Age: 55 Year
  Sex: Male

DRUGS (5)
  1. MAGNESIUM [Concomitant]
     Route: 048
     Dates: start: 20110122
  2. LENALIDOMIDE [Suspect]
     Route: 048
     Dates: start: 20110111, end: 20110208
  3. ASPIRIN [Concomitant]
     Indication: THROMBOSIS PROPHYLAXIS
     Dosage: 100 MILLIGRAM
     Route: 048
     Dates: start: 20100128
  4. IBUPROFEN [Concomitant]
     Route: 048
  5. LENALIDOMIDE [Suspect]
     Route: 048
     Dates: start: 20100628

REACTIONS (1)
  - HYPERTENSIVE CRISIS [None]
